FAERS Safety Report 9842202 (Version 3)
Quarter: 2014Q1

REPORT INFORMATION
  Report Type: Spontaneous
  Country: US (occurrence: US)
  Receive Date: 20140124
  Receipt Date: 20140226
  Transmission Date: 20141002
  Serious: Yes (Hospitalization)
  Sender: FDA-Public Use
  Company Number: US-GLAXOSMITHKLINE-A1057086A

PATIENT
  Age: 85 Year
  Sex: Female

DRUGS (16)
  1. ADVAIR [Suspect]
     Indication: CHRONIC OBSTRUCTIVE PULMONARY DISEASE
     Dosage: 1PUFF TWICE PER DAY
     Route: 055
  2. ALBUTEROL [Concomitant]
  3. TUDORZA PRESSAIR [Concomitant]
  4. PROAIR HFA [Concomitant]
  5. DALIRESP [Concomitant]
  6. OMEPRAZOLE [Concomitant]
  7. METOPROLOL [Concomitant]
  8. DILTIAZEM [Concomitant]
  9. CITALOPRAM [Concomitant]
  10. FERROUS SULFATE [Concomitant]
  11. CALCIUM [Concomitant]
  12. PRESERVISION [Concomitant]
  13. PRAMIPEXOLE [Concomitant]
  14. MONTELUKAST [Concomitant]
  15. STOOL SOFTENER [Concomitant]
  16. TYLENOL + CODEINE [Concomitant]

REACTIONS (4)
  - Dyspnoea [Not Recovered/Not Resolved]
  - Faeces discoloured [Not Recovered/Not Resolved]
  - Oesophageal irritation [Not Recovered/Not Resolved]
  - Product quality issue [Unknown]
